FAERS Safety Report 19829266 (Version 1)
Quarter: 2021Q3

REPORT INFORMATION
  Report Type: Spontaneous
  Country: GB (occurrence: GB)
  Receive Date: 20210914
  Receipt Date: 20210914
  Transmission Date: 20211014
  Serious: Yes (Other)
  Sender: FDA-Public Use
  Company Number: GB-MYLANLABS-2021M1061050

PATIENT
  Age: 22 Year
  Sex: Female

DRUGS (1)
  1. NAPROXEN. [Suspect]
     Active Substance: NAPROXEN
     Indication: ILL-DEFINED DISORDER
     Dosage: UNK
     Route: 048
     Dates: start: 20210429, end: 20210502

REACTIONS (2)
  - Medication error [Unknown]
  - Gastritis [Recovered/Resolved]

NARRATIVE: CASE EVENT DATE: 20210506
